FAERS Safety Report 7454489-4 (Version None)
Quarter: 2011Q2

REPORT INFORMATION
  Report Type: 
  Country: None (occurrence: None)
  Receive Date: 20110425
  Receipt Date: 20110419
  Transmission Date: 20111010
  Serious: Yes (Hospitalization)
  Sender: FDA-Public Use
  Company Number: 2011MA003557

PATIENT
  Age: 76 Year
  Sex: Female

DRUGS (3)
  1. SERTRALINE HYDROCHLORIDE [Suspect]
     Indication: DEPRESSED MOOD
  2. BIPHOSPHONATES [Concomitant]
  3. TRAMADOL CHLORHYDRATE [Concomitant]

REACTIONS (5)
  - LEUKOCYTOCLASTIC VASCULITIS [None]
  - RESPIRATORY FAILURE [None]
  - EOSINOPHILIC PNEUMONIA [None]
  - PULMONARY CONGESTION [None]
  - TOXICITY TO VARIOUS AGENTS [None]
